FAERS Safety Report 10679242 (Version 1)
Quarter: 2014Q4

REPORT INFORMATION
  Report Type: Spontaneous
  Country: US (occurrence: None)
  Receive Date: 20141224
  Receipt Date: 20141224
  Transmission Date: 20150529
  Serious: Yes (Hospitalization)
  Sender: FDA-Public Use
  Company Number: None

PATIENT
  Age: 53 Year
  Sex: Female
  Weight: 71 kg

DRUGS (1)
  1. INVOKAMET [Suspect]
     Active Substance: CANAGLIFLOZIN\METFORMIN HYDROCHLORIDE
     Indication: TYPE 2 DIABETES MELLITUS
     Dosage: 1 TABLET BID ORAL
     Route: 048
     Dates: start: 20141210, end: 20141220

REACTIONS (6)
  - Metabolic acidosis [None]
  - Respiratory disorder [None]
  - Acidosis [None]
  - Vomiting [None]
  - Hyperkalaemia [None]
  - Nausea [None]

NARRATIVE: CASE EVENT DATE: 20141220
